FAERS Safety Report 8607541-1 (Version None)
Quarter: 2012Q3

REPORT INFORMATION
  Report Type: 
  Country: None (occurrence: None)
  Receive Date: 20120821
  Receipt Date: 20120809
  Transmission Date: 20120928
  Serious: Yes (Hospitalization, Other)
  Sender: FDA-Public Use
  Company Number: US-BAYER-2012-053954

PATIENT
  Age: 40 Year
  Sex: Female

DRUGS (3)
  1. YAZ [Suspect]
     Dosage: UNK
     Dates: start: 20070116, end: 20080125
  2. PREVACID [Concomitant]
  3. OXYCODONE HCL AND ACETAMINOPHEN [Concomitant]
     Dosage: 5/325
     Dates: start: 20080708

REACTIONS (11)
  - INJURY [None]
  - SKIN DISCOLOURATION [None]
  - PAIN [None]
  - CHOLECYSTITIS CHRONIC [None]
  - ANXIETY [None]
  - GALLBLADDER INJURY [None]
  - EMOTIONAL DISTRESS [None]
  - FEELING COLD [None]
  - DEEP VEIN THROMBOSIS [None]
  - GENERAL PHYSICAL HEALTH DETERIORATION [None]
  - PERIPHERAL PULSE DECREASED [None]
